FAERS Safety Report 5476601-9 (Version None)
Quarter: 2007Q4

REPORT INFORMATION
  Report Type: 
  Country: None (occurrence: None)
  Receive Date: 20071004
  Receipt Date: 20070925
  Transmission Date: 20080405
  Serious: Yes (Hospitalization)
  Sender: FDA-Public Use
  Company Number: PHHO2007KR15857

PATIENT
  Age: 52 Year
  Sex: Male

DRUGS (1)
  1. TELBIVUDINE [Suspect]
     Indication: HEPATITIS B
     Dosage: 600 MG, UNK
     Route: 048
     Dates: start: 20051207

REACTIONS (2)
  - THYROID NEOPLASM [None]
  - THYROID NODULE REMOVAL [None]
